FAERS Safety Report 4487926-8 (Version None)
Quarter: 2004Q4

REPORT INFORMATION
  Report Type: 
  Country: None (occurrence: None)
  Receive Date: 20041022
  Receipt Date: 20040802
  Transmission Date: 20050328
  Serious: Yes (Hospitalization)
  Sender: FDA-Public Use
  Company Number: 2004-BP-06308AU

PATIENT
  Age: 79 Year
  Sex: Male

DRUGS (1)
  1. SPIRIVA [Suspect]
     Dosage: 18 MCG), IH
     Route: 055
     Dates: start: 20030201

REACTIONS (8)
  - CATARACT [None]
  - CONSTIPATION [None]
  - COUGH [None]
  - DRY MOUTH [None]
  - DRY THROAT [None]
  - DYSURIA [None]
  - INTRAOCULAR PRESSURE INCREASED [None]
  - RASH PAPULAR [None]
